FAERS Safety Report 10307508 (Version 1)
Quarter: 2014Q3

REPORT INFORMATION
  Report Type: Spontaneous
  Country: US (occurrence: None)
  Receive Date: 20140714
  Receipt Date: 20140714
  Transmission Date: 20150326
  Serious: Yes (Disabling)
  Sender: FDA-Public Use
  Company Number: None

PATIENT
  Age: 25 Year
  Sex: Female
  Weight: 53.98 kg

DRUGS (1)
  1. CIPROFLOXACIN. [Suspect]
     Active Substance: CIPROFLOXACIN
     Indication: SINUSITIS
     Dosage: 14   ONCE DAILY TAKEN BY MOUTH
     Route: 048
     Dates: start: 20140707, end: 20140708

REACTIONS (3)
  - Tendon rupture [None]
  - Abasia [None]
  - Muscular weakness [None]

NARRATIVE: CASE EVENT DATE: 20140707
